FAERS Safety Report 21570166 (Version 1)
Quarter: 2022Q4

REPORT INFORMATION
  Report Type: Spontaneous
  Country: JP (occurrence: JP)
  Receive Date: 20221109
  Receipt Date: 20221109
  Transmission Date: 20230112
  Serious: Yes (Disabling)
  Sender: FDA-Public Use
  Company Number: JP-CELLTRION INC.-2022JP013762

PATIENT

DRUGS (13)
  1. TRASTUZUMAB [Suspect]
     Active Substance: TRASTUZUMAB
     Indication: HER2 positive breast cancer
     Dosage: 400 MG/BODY/1.5 H EVERY 3 WEEKS (150 MG [NK] AND 60 MG [NK])
     Route: 041
     Dates: start: 20220804, end: 20220804
  2. TRASTUZUMAB [Suspect]
     Active Substance: TRASTUZUMAB
     Dosage: 400 MG/BODY/1.5 H, EVERY 3 WEEKS 2ND COURSE (SAME RATE AS THE PREVIOUS RATE)
     Route: 041
     Dates: start: 20220825
  3. TRASTUZUMAB [Suspect]
     Active Substance: TRASTUZUMAB
     Dosage: 400 MG/HR, EVERY 3 WEEKS
     Route: 041
     Dates: start: 20220913
  4. PERJETA [Concomitant]
     Active Substance: PERTUZUMAB
     Indication: HER2 positive breast cancer
     Dosage: 840 MG/BODY/H
     Dates: start: 20220804
  5. PERJETA [Concomitant]
     Active Substance: PERTUZUMAB
     Dosage: 840 MG/BODY/H 2ND COURSE (SAME RATE AS THE PREVIOUS RATE)
     Dates: start: 20220825
  6. PERJETA [Concomitant]
     Active Substance: PERTUZUMAB
     Dosage: 420 MG/0.5 H
     Route: 042
     Dates: start: 20220913
  7. EXFORGE [Concomitant]
     Active Substance: AMLODIPINE BESYLATE\VALSARTAN
     Indication: Hypertension
  8. LASIX [Concomitant]
     Active Substance: FUROSEMIDE
     Indication: Hypertension
  9. FAMOTIDINE [Concomitant]
     Active Substance: FAMOTIDINE
     Indication: Premedication
     Dosage: 20 MG
     Route: 042
     Dates: start: 20220825
  10. FAMOTIDINE [Concomitant]
     Active Substance: FAMOTIDINE
     Dosage: 20 MG
     Route: 042
     Dates: start: 20220913
  11. POLARAMINE [Concomitant]
     Active Substance: DEXCHLORPHENIRAMINE MALEATE
     Indication: Premedication
     Dosage: 5 MG
     Route: 042
     Dates: start: 20220825
  12. POLARAMINE [Concomitant]
     Active Substance: DEXCHLORPHENIRAMINE MALEATE
     Dosage: 5 MG
     Route: 042
     Dates: start: 20220913
  13. CALONAL [Concomitant]
     Active Substance: ACETAMINOPHEN
     Indication: Premedication
     Dosage: 1 DF
     Dates: start: 20220825

REACTIONS (3)
  - Infusion related reaction [Recovered/Resolved]
  - Overdose [Unknown]
  - Off label use [Unknown]

NARRATIVE: CASE EVENT DATE: 20220804
